FAERS Safety Report 7689508-3 (Version None)
Quarter: 2011Q3

REPORT INFORMATION
  Report Type: 
  Country: None (occurrence: None)
  Receive Date: 20110817
  Receipt Date: 20110707
  Transmission Date: 20111222
  Serious: No
  Sender: FDA-Public Use
  Company Number: US-TYCO HEALTHCARE/MALLINCKRODT-T201101406

PATIENT
  Sex: Female

DRUGS (2)
  1. DURAGESIC-100 [Concomitant]
     Indication: NEUROPATHY PERIPHERAL
     Dosage: UNK
     Dates: start: 20060101, end: 20110501
  2. FENTANYL-100 [Suspect]
     Indication: NEUROPATHY PERIPHERAL
     Dosage: UNK
     Dates: start: 20110501

REACTIONS (2)
  - PANIC ATTACK [None]
  - DRUG EFFECT DECREASED [None]
